FAERS Safety Report 7670784-8 (Version None)
Quarter: 2011Q3

REPORT INFORMATION
  Report Type: 
  Country: None (occurrence: None)
  Receive Date: 20110809
  Receipt Date: 20110805
  Transmission Date: 20111222
  Serious: Yes (Other)
  Sender: FDA-Public Use
  Company Number: US-BRISTOL-MYERS SQUIBB COMPANY-15907330

PATIENT
  Age: 44 Year
  Sex: Female
  Weight: 80 kg

DRUGS (3)
  1. GEODON [Suspect]
     Indication: BIPOLAR I DISORDER
     Route: 048
     Dates: start: 20090101, end: 20090101
  2. WELLBUTRIN [Suspect]
     Dosage: FOR 1 WK IN 1987 AND 1 TO 2 WKS IN 1992
     Route: 048
     Dates: start: 19870101
  3. ABILIFY [Suspect]

REACTIONS (6)
  - CONVULSION [None]
  - HEAD INJURY [None]
  - ROAD TRAFFIC ACCIDENT [None]
  - SOMNOLENCE [None]
  - GRAND MAL CONVULSION [None]
  - DRUG HYPERSENSITIVITY [None]
